FAERS Safety Report 8338487-4 (Version None)
Quarter: 2012Q2

REPORT INFORMATION
  Report Type: 
  Country: None (occurrence: None)
  Receive Date: 20120504
  Receipt Date: 20120426
  Transmission Date: 20120825
  Serious: Yes (Hospitalization, Other)
  Sender: FDA-Public Use
  Company Number: US-AMGEN-USASP2011046923

PATIENT
  Age: 61 Year
  Sex: Female

DRUGS (1)
  1. ENBREL [Suspect]
     Indication: RHEUMATOID ARTHRITIS
     Dosage: 50 MG, QWK
     Dates: start: 20110812

REACTIONS (15)
  - CORONARY ARTERY DISEASE [None]
  - OEDEMA PERIPHERAL [None]
  - JOINT CREPITATION [None]
  - RENAL FAILURE [None]
  - COUGH [None]
  - NEUROPATHY PERIPHERAL [None]
  - SKIN DISCOLOURATION [None]
  - INJECTION SITE PAIN [None]
  - ARTHRALGIA [None]
  - BLOOD GLUCOSE INCREASED [None]
  - DRUG INEFFECTIVE [None]
  - KNEE ARTHROPLASTY [None]
  - JOINT RANGE OF MOTION DECREASED [None]
  - UPPER RESPIRATORY TRACT CONGESTION [None]
  - SCAR [None]
